FAERS Safety Report 15824853 (Version 1)
Quarter: 2019Q1

REPORT INFORMATION
  Report Type: Spontaneous
  Country: PL (occurrence: PL)
  Receive Date: 20190115
  Receipt Date: 20190115
  Transmission Date: 20190417
  Serious: Yes (Other)
  Sender: FDA-Public Use
  Company Number: PL-009507513-1901POL001753

PATIENT
  Age: 59 Year
  Sex: Female

DRUGS (6)
  1. RIBAVIRIN. [Suspect]
     Active Substance: RIBAVIRIN
     Indication: CHRONIC HEPATITIS C
     Dosage: 1200 MG, QD
     Route: 065
     Dates: start: 20160929, end: 20170316
  2. SOVALDI [Suspect]
     Active Substance: SOFOSBUVIR
     Indication: CHRONIC HEPATITIS C
     Dosage: 1 DF, QD
     Route: 065
     Dates: start: 20160929, end: 20170316
  3. PIRAMIL [Concomitant]
     Active Substance: RAMIPRIL
     Dosage: UNK
  4. BETO ZK [Concomitant]
     Active Substance: METOPROLOL SUCCINATE
     Dosage: UNK
  5. DOXEPIN HYDROCHLORIDE. [Concomitant]
     Active Substance: DOXEPIN HYDROCHLORIDE
     Dosage: UNK
  6. DIAPREL [Concomitant]
     Active Substance: GLICLAZIDE
     Dosage: UNK

REACTIONS (3)
  - Blood bilirubin increased [Recovered/Resolved]
  - Headache [Recovered/Resolved]
  - Drug ineffective [Recovered/Resolved]
